FAERS Safety Report 23205404 (Version 2)
Quarter: 2024Q1

REPORT INFORMATION
  Report Type: Spontaneous
  Country: US (occurrence: US)
  Receive Date: 20231120
  Receipt Date: 20240131
  Transmission Date: 20240409
  Serious: No
  Sender: FDA-Public Use
  Company Number: US-PFIZER INC-PV202300189068

PATIENT
  Age: 70 Year
  Sex: Female
  Weight: 60.771 kg

DRUGS (2)
  1. IBRANCE [Suspect]
     Active Substance: PALBOCICLIB
     Indication: Endometrial cancer
     Dosage: 100 MG, 1X/DAY
     Dates: start: 20220215
  2. ANASTROZOLE [Concomitant]
     Active Substance: ANASTROZOLE
     Dosage: UNK
     Dates: start: 20211127

REACTIONS (2)
  - Alopecia [Unknown]
  - Off label use [Unknown]
